FAERS Safety Report 5199490-9 (Version None)
Quarter: 2006Q4

REPORT INFORMATION
  Report Type: 
  Country: None (occurrence: None)
  Receive Date: 20061229
  Receipt Date: 20061212
  Transmission Date: 20070319
  Serious: Yes (Disabling)
  Sender: FDA-Public Use
  Company Number: 150970ISR

PATIENT
  Age: 45 Year
  Sex: Female

DRUGS (1)
  1. CLARITHROMYCIN [Suspect]
     Dosage: 1000 MG (500 MG, 2 IN 1 D), ORAL
     Route: 048
     Dates: start: 20061029, end: 20061031

REACTIONS (4)
  - DIARRHOEA [None]
  - HAEMORRHAGE [None]
  - THROMBOCYTOPENIA [None]
  - VOMITING [None]
